FAERS Safety Report 25567457 (Version 1)
Quarter: 2025Q3

REPORT INFORMATION
  Report Type: Spontaneous
  Country: CN (occurrence: CN)
  Receive Date: 20250716
  Receipt Date: 20250716
  Transmission Date: 20251021
  Serious: Yes (Other)
  Sender: PFIZER
  Company Number: CN-MLMSERVICE-20250708-PI564419-00286-4

PATIENT
  Age: 65 Year
  Sex: Male

DRUGS (5)
  1. PAXLOVID [Suspect]
     Active Substance: NIRMATRELVIR\RITONAVIR
     Indication: COVID-19 treatment
     Dosage: [NIRMATRELVIR 300 MG]/[RITONAVIR 100 MG]; 2X/DAY
     Dates: start: 20221230
  2. METHYLPREDNISOLONE [Concomitant]
     Active Substance: METHYLPREDNISOLONE
     Indication: Pneumonia
     Dosage: 40 MG, 1X/DAY
     Route: 042
     Dates: start: 202212, end: 20240103
  3. PIPERACILLIN AND TAZOBACTAM [Concomitant]
     Active Substance: PIPERACILLIN SODIUM\TAZOBACTAM SODIUM
     Indication: Anti-infective therapy
     Dosage: 4.5 G, Q8H
     Route: 041
     Dates: start: 202212
  4. SIVELESTAT SODIUM [Concomitant]
     Active Substance: SIVELESTAT SODIUM
     Indication: Immune enhancement therapy
     Dosage: 0.3 G, QD, IV
     Route: 042
     Dates: start: 202212
  5. IMMUNE GLOBULIN NOS [Concomitant]
     Active Substance: IMMUNE GLOBULIN NOS
     Indication: Immune enhancement therapy
     Dosage: 200 MG, 1X/DAY
     Route: 042

REACTIONS (3)
  - Abdominal discomfort [Unknown]
  - Vomiting [Recovered/Resolved]
  - Off label use [Unknown]

NARRATIVE: CASE EVENT DATE: 20230102
